FAERS Safety Report 5502939-2 (Version None)
Quarter: 2007Q4

REPORT INFORMATION
  Report Type: 
  Country: None (occurrence: None)
  Receive Date: 20071031
  Receipt Date: 20071023
  Transmission Date: 20080405
  Serious: Yes (Hospitalization)
  Sender: FDA-Public Use
  Company Number: B0491143A

PATIENT
  Age: 74 Year
  Sex: Male
  Weight: 71 kg

DRUGS (11)
  1. ARIXTRA [Suspect]
     Indication: THROMBOSIS PROPHYLAXIS
     Dosage: 2.5MG PER DAY
     Route: 058
     Dates: start: 20070720, end: 20070802
  2. PLETAL [Suspect]
     Indication: CEREBRAL INFARCTION
     Dosage: 50MG TWICE PER DAY
     Route: 048
  3. PENTCILLIN [Suspect]
     Indication: INFECTION
     Dosage: 2G TWICE PER DAY
     Route: 042
     Dates: start: 20070719, end: 20070722
  4. TIENAM [Suspect]
     Indication: INFECTION
     Route: 042
     Dates: start: 20070723, end: 20070726
  5. MINOCYCLINE HCL [Suspect]
     Indication: INFECTION
     Dosage: 100MG TWICE PER DAY
     Route: 048
     Dates: start: 20070726, end: 20070727
  6. AMLODIPINE [Concomitant]
     Indication: HYPERTENSION
     Dosage: 2.5MG PER DAY
     Route: 048
     Dates: start: 20070914
  7. LOXONIN [Concomitant]
     Indication: PAIN
     Dosage: 60MG TWICE PER DAY
     Route: 048
     Dates: start: 20070628, end: 20070914
  8. FAMOTIDINE [Concomitant]
     Indication: GASTRIC ULCER
     Dosage: 40MG PER DAY
     Route: 048
     Dates: start: 20070719, end: 20070919
  9. PANTOSIN [Concomitant]
     Indication: CONSTIPATION
     Dosage: 200MG PER DAY
     Route: 048
     Dates: start: 20070606
  10. ALOSENN [Concomitant]
     Indication: CONSTIPATION
     Dosage: .5G PER DAY
     Route: 048
     Dates: start: 20070611
  11. MAGLAX [Concomitant]
     Indication: CONSTIPATION
     Dosage: 100MG PER DAY
     Route: 048
     Dates: start: 20070606

REACTIONS (12)
  - ANAEMIA [None]
  - FEELING HOT [None]
  - GASTRIC ULCER HAEMORRHAGE [None]
  - HAEMATEMESIS [None]
  - HAEMOGLOBIN DECREASED [None]
  - HAEMORRHAGE [None]
  - HAEMORRHAGE SUBCUTANEOUS [None]
  - POST PROCEDURAL HAEMATOMA [None]
  - PYREXIA [None]
  - STAPHYLOCOCCAL INFECTION [None]
  - SWELLING [None]
  - WOUND DEHISCENCE [None]
